FAERS Safety Report 4684537-6 (Version None)
Quarter: 2005Q2

REPORT INFORMATION
  Report Type: 
  Country: None (occurrence: None)
  Receive Date: 20050531
  Receipt Date: 20050418
  Transmission Date: 20051028
  Serious: Yes (Hospitalization, Other)
  Sender: FDA-Public Use
  Company Number: US_0405103187

PATIENT
  Age: 41 Year
  Sex: Male
  Weight: 72 kg

DRUGS (5)
  1. ZYPREXA [Suspect]
     Dosage: 15 MG AT BEDTIME
     Dates: start: 19980101
  2. LITHIUM [Concomitant]
  3. HALOPERIDOL [Concomitant]
  4. VALPROATE BISMUTH [Concomitant]
  5. ACETYLSALICYLIC ACID SRT [Concomitant]

REACTIONS (14)
  - DIABETES MELLITUS [None]
  - DIABETIC NEUROPATHY [None]
  - DYSPEPSIA [None]
  - EYELID PTOSIS [None]
  - HYPERGLYCAEMIA [None]
  - HYPERPHAGIA [None]
  - HYPERTENSION [None]
  - HYPOGLYCAEMIA [None]
  - POLYDIPSIA [None]
  - POLYURIA [None]
  - TREMOR [None]
  - VISION BLURRED [None]
  - WEIGHT DECREASED [None]
  - WEIGHT INCREASED [None]
